FAERS Safety Report 19154173 (Version 1)
Quarter: 2021Q2

REPORT INFORMATION
  Report Type: Spontaneous
  Country: US (occurrence: US)
  Receive Date: 20210419
  Receipt Date: 20210419
  Transmission Date: 20210717
  Serious: No
  Sender: FDA-Public Use
  Company Number: US-SA-2021SA113584

PATIENT
  Age: 81 Year
  Sex: Female

DRUGS (1)
  1. SOLIQUA 100/33 [Suspect]
     Active Substance: INSULIN GLARGINE\LIXISENATIDE
     Indication: TYPE 2 DIABETES MELLITUS
     Dosage: 60 IU, QD
     Dates: start: 2020

REACTIONS (3)
  - Nausea [Unknown]
  - Product dose omission in error [Unknown]
  - Vomiting [Unknown]

NARRATIVE: CASE EVENT DATE: 2020
